FAERS Safety Report 5963038-9 (Version None)
Quarter: 2008Q4

REPORT INFORMATION
  Report Type: 
  Country: None (occurrence: None)
  Receive Date: 20081121
  Receipt Date: 20081106
  Transmission Date: 20090506
  Serious: Yes (Hospitalization, Other)
  Sender: FDA-Public Use
  Company Number: 0296

PATIENT
  Age: 94 Year
  Sex: Female

DRUGS (4)
  1. METHYLDOPA [Suspect]
     Indication: HYPERTENSION
     Dosage: 250 MG, PO
     Route: 048
     Dates: end: 20081017
  2. AMIODARONE HYDROCHLORIDE [Concomitant]
  3. ASPIRIN LYSINE [Concomitant]
  4. ESOMEPRAZOLE MAGNESIUM [Concomitant]

REACTIONS (1)
  - TOXIC SKIN ERUPTION [None]
